FAERS Safety Report 8911120 (Version 1)
Quarter: 2012Q4

REPORT INFORMATION
  Report Type: Spontaneous
  Country: US (occurrence: None)
  Receive Date: 20121114
  Receipt Date: 20121114
  Transmission Date: 20130627
  Serious: No
  Sender: FDA-Public Use
  Company Number: None

PATIENT
  Age: 40 Year
  Sex: Male

DRUGS (8)
  1. CLINDAMYCIN [Suspect]
     Dates: start: 20100412, end: 20100420
  2. SEPTRA [Suspect]
     Dates: start: 20100322, end: 20100405
  3. HYOSCYAMINE [Concomitant]
  4. LEVOFLOXACIN [Concomitant]
  5. MESALAZINE [Concomitant]
  6. OMEPRAZOLE [Concomitant]
  7. OXYCODONE W/PARACETAMOL [Concomitant]
  8. SERTRALINE [Concomitant]

REACTIONS (15)
  - Headache [None]
  - Jaundice [None]
  - Chromaturia [None]
  - Nausea [None]
  - Fatigue [None]
  - Pruritus [None]
  - Decreased appetite [None]
  - Aspartate aminotransferase increased [None]
  - Alanine aminotransferase increased [None]
  - Blood alkaline phosphatase increased [None]
  - Blood bilirubin increased [None]
  - Drug-induced liver injury [None]
  - Cholestasis [None]
  - Hepatomegaly [None]
  - Gallbladder disorder [None]
